FAERS Safety Report 23486528 (Version 1)
Quarter: 2024Q1

REPORT INFORMATION
  Report Type: Spontaneous
  Country: CH (occurrence: CH)
  Receive Date: 20240206
  Receipt Date: 20240206
  Transmission Date: 20240410
  Serious: Yes (Hospitalization)
  Sender: FDA-Public Use
  Company Number: None

PATIENT
  Age: 73 Year
  Sex: Male
  Weight: 56.7 kg

DRUGS (3)
  1. ARCOXIA [Suspect]
     Active Substance: ETORICOXIB
     Indication: Osteoarthritis
     Dosage: 1-0-0
     Route: 048
     Dates: end: 20231121
  2. METAMIZOLE [Suspect]
     Active Substance: METAMIZOLE
     Indication: Osteoarthritis
     Dosage: 0-0-1
     Route: 048
     Dates: end: 20231121
  3. ARIPIPRAZOLE [Suspect]
     Active Substance: ARIPIPRAZOLE
     Indication: Schizophrenia
     Dosage: 1-0-1
     Route: 048
     Dates: start: 202304, end: 20231118

REACTIONS (1)
  - Drug-induced liver injury [Recovered/Resolved]

NARRATIVE: CASE EVENT DATE: 20231118
